FAERS Safety Report 12337657 (Version 3)
Quarter: 2016Q3

REPORT INFORMATION
  Report Type: Spontaneous
  Country: FR (occurrence: FR)
  Receive Date: 20160505
  Receipt Date: 20160912
  Transmission Date: 20161109
  Serious: Yes (Other)
  Sender: FDA-Public Use
  Company Number: PHHY2016FR060193

PATIENT
  Age: 33 Year
  Sex: Female

DRUGS (1)
  1. BENZATHINE BENZYLPENICILLIN SANDOZ [Suspect]
     Active Substance: PENICILLIN G BENZATHINE
     Indication: NEUROSYPHILIS
     Dosage: 12 MIU, BID
     Route: 042
     Dates: start: 20160426, end: 20160427

REACTIONS (6)
  - Drug dispensing error [Unknown]
  - No adverse event [Unknown]
  - Wrong drug administered [Unknown]
  - Medication error [Unknown]
  - Product quality issue [Unknown]
  - Incorrect route of drug administration [Unknown]

NARRATIVE: CASE EVENT DATE: 20160426
